FAERS Safety Report 14930899 (Version 1)
Quarter: 2018Q2

REPORT INFORMATION
  Report Type: Spontaneous
  Country: US (occurrence: US)
  Receive Date: 20180524
  Receipt Date: 20180524
  Transmission Date: 20180711
  Serious: No
  Sender: FDA-Public Use
  Company Number: US-LUPIN PHARMACEUTICALS INC.-2018-01727

PATIENT
  Age: 37 Year
  Sex: Female
  Weight: 146.94 kg

DRUGS (1)
  1. VANCOMYCIN HYDROCHLORIDE CAPSULES USP 125 MG [Suspect]
     Active Substance: VANCOMYCIN HYDROCHLORIDE
     Indication: CLOSTRIDIUM DIFFICILE COLITIS
     Dosage: 125 MG, QID
     Route: 048
     Dates: start: 20180226, end: 20180227

REACTIONS (7)
  - Pruritus generalised [Recovered/Resolved]
  - Aphonia [Recovered/Resolved]
  - Skin disorder [Not Recovered/Not Resolved]
  - Generalised erythema [Recovered/Resolved]
  - Feeling abnormal [Recovered/Resolved]
  - Pain [Not Recovered/Not Resolved]
  - Rash generalised [Recovered/Resolved]

NARRATIVE: CASE EVENT DATE: 20180226
